FAERS Safety Report 8115644-3 (Version None)
Quarter: 2012Q1

REPORT INFORMATION
  Report Type: 
  Country: None (occurrence: None)
  Receive Date: 20120206
  Receipt Date: 20120131
  Transmission Date: 20120608
  Serious: Yes (Other)
  Sender: FDA-Public Use
  Company Number: US-SANOFI-AVENTIS-2011SA074120

PATIENT
  Age: 51 Year
  Sex: Male
  Weight: 47 kg

DRUGS (4)
  1. SOLOSTAR [Suspect]
     Indication: TYPE 2 DIABETES MELLITUS
     Dates: start: 20110922
  2. LANTUS [Suspect]
     Indication: TYPE 2 DIABETES MELLITUS
     Route: 058
     Dates: start: 20100101, end: 20100101
  3. LANTUS [Suspect]
     Route: 058
     Dates: start: 20110922
  4. NOVOLOG [Concomitant]
     Dosage: DEPENDS ON BLOOD SUGAR
     Dates: start: 20110922

REACTIONS (5)
  - BLOOD GLUCOSE INCREASED [None]
  - PANCREATITIS ACUTE [None]
  - INJECTION SITE PRURITUS [None]
  - DIARRHOEA [None]
  - HYPOGLYCAEMIA [None]
